FAERS Safety Report 18928230 (Version 1)
Quarter: 2021Q1

REPORT INFORMATION
  Report Type: Spontaneous
  Country: GB (occurrence: GB)
  Receive Date: 20210223
  Receipt Date: 20210223
  Transmission Date: 20210420
  Serious: Yes (Life-Threatening, Hospitalization)
  Sender: FDA-Public Use
  Company Number: GB-ASTRAZENECA-2021A064804

PATIENT
  Age: 39 Year
  Sex: Female

DRUGS (7)
  1. QUETIAPINE. [Suspect]
     Active Substance: QUETIAPINE
     Indication: BIPOLAR DISORDER
     Dosage: AT NIGHT (350 MG,1 IN 1 DAY)
     Route: 048
     Dates: start: 20210202
  2. VENLAFAXINE [Suspect]
     Active Substance: VENLAFAXINE HYDROCHLORIDE
     Indication: BIPOLAR DISORDER
     Dosage: IN THE MORNING (225 MG,1 IN 1 DAY)
     Route: 048
     Dates: start: 20210202
  3. FERROUS FUMARATE [Concomitant]
     Active Substance: FERROUS FUMARATE
  4. PARACETAMOL [Concomitant]
     Active Substance: ACETAMINOPHEN
  5. LEVOTHYROXINE. [Concomitant]
     Active Substance: LEVOTHYROXINE
     Dosage: 100MCG/125MCG ON ALTERNATING DAYS (1 DOSAGE FORMS,1 IN 1 D)
  6. THIAMINE. [Concomitant]
     Active Substance: THIAMINE
     Dosage: 300 MG (100 MG,3 IN 1 D)
  7. VITAMIN B COMPLEX STRONG [Concomitant]
     Dosage: 3 DOSAGE FORMS (1 DOSAGE FORMS,3 IN 1 D)

REACTIONS (5)
  - Starvation ketoacidosis [Unknown]
  - Neuroleptic malignant syndrome [Recovering/Resolving]
  - Intentional dose omission [Unknown]
  - Fall [Unknown]
  - Muscle rigidity [Unknown]

NARRATIVE: CASE EVENT DATE: 20210131
